FAERS Safety Report 4421521-1 (Version None)
Quarter: 2004Q3

REPORT INFORMATION
  Report Type: 
  Country: None (occurrence: None)
  Receive Date: 20040804
  Receipt Date: 20040728
  Transmission Date: 20050211
  Serious: Yes (Death)
  Sender: FDA-Public Use
  Company Number: 2004US000853

PATIENT
  Age: 54 Year
  Sex: Female

DRUGS (3)
  1. PROGRAF [Suspect]
     Indication: HEART TRANSPLANT
     Dosage: BID
  2. PREDNISONE [Suspect]
     Indication: IMMUNOSUPPRESSION
     Dosage: BID
  3. MYCOFENOLATE MOFETIL (MYCOPHENOLATE MOFETIL) [Suspect]
     Indication: IMMUNOSUPPRESSION

REACTIONS (3)
  - COMA [None]
  - SEPSIS [None]
  - STRONGYLOIDIASIS [None]
